FAERS Safety Report 4343500-5 (Version None)
Quarter: 2004Q2

REPORT INFORMATION
  Report Type: 
  Country: None (occurrence: None)
  Receive Date: 20040421
  Receipt Date: 20040421
  Transmission Date: 20050107
  Serious: Yes (Hospitalization)
  Sender: FDA-Public Use
  Company Number: None

PATIENT
  Age: 52 Year
  Sex: Female
  Weight: 94.8018 kg

DRUGS (4)
  1. DEXAMETHASONE [Suspect]
     Indication: RENAL CELL CARCINOMA STAGE UNSPECIFIED
     Dosage: 12 MG PO BID
     Route: 048
     Dates: start: 20040415
  2. LEUKINE [Suspect]
     Dosage: 250 MG/M2 SQ QD
     Route: 058
     Dates: start: 20040413
  3. COREG [Concomitant]
  4. GLUCONANCE [Concomitant]

REACTIONS (5)
  - BLOOD CREATININE INCREASED [None]
  - BLOOD GLUCOSE INCREASED [None]
  - BLOOD UREA INCREASED [None]
  - HYPERGLYCAEMIA [None]
  - RENAL FAILURE ACUTE [None]
